FAERS Safety Report 17975770 (Version 1)
Quarter: 2020Q3

REPORT INFORMATION
  Report Type: Spontaneous
  Country: ES (occurrence: ES)
  Receive Date: 20200702
  Receipt Date: 20200702
  Transmission Date: 20201103
  Serious: Yes (Other)
  Sender: FDA-Public Use
  Company Number: NVSC2020ES181875

PATIENT
  Age: 2 Month
  Sex: Male
  Weight: 4.5 kg

DRUGS (1)
  1. FUROSEMIDA SANDOZ 40 MG COMPRIMIDOS [Suspect]
     Active Substance: FUROSEMIDE
     Indication: RENAL FAILURE
     Dosage: 4 MG, Q6H
     Route: 048
     Dates: start: 20191015, end: 20191031

REACTIONS (1)
  - Hyponatraemia [Recovered/Resolved]

NARRATIVE: CASE EVENT DATE: 20191031
